FAERS Safety Report 14337944 (Version 4)
Quarter: 2020Q1

REPORT INFORMATION
  Report Type: Spontaneous
  Country: US (occurrence: US)
  Receive Date: 20171229
  Receipt Date: 20200319
  Transmission Date: 20200409
  Serious: Yes (Hospitalization)
  Sender: FDA-Public Use
  Company Number: US-UNITED THERAPEUTICS-UNT-2017-018112

PATIENT
  Age: 61 Year
  Sex: Female
  Weight: 70.3 kg

DRUGS (17)
  1. SYMBICORT [Concomitant]
     Active Substance: BUDESONIDE\FORMOTEROL FUMARATE DIHYDRATE
     Indication: ASTHMA
     Dosage: 4 PUFF, TOTAL DAILY DOSE
     Route: 065
     Dates: start: 20161026
  2. REMODULIN [Suspect]
     Active Substance: TREPROSTINIL
     Indication: PULMONARY HYPERTENSION
     Dosage: 0.060 ?G/KG, CONTINUING (TOTAL DAILY DOSE)
     Route: 041
     Dates: start: 20171031
  3. REMODULIN [Suspect]
     Active Substance: TREPROSTINIL
     Indication: PULMONARY ARTERIAL HYPERTENSION
     Dosage: 0.06 ?G/KG, CONTINUING
     Route: 041
     Dates: start: 20161230
  4. ADEMPAS [Suspect]
     Active Substance: RIOCIGUAT
     Indication: PULMONARY ARTERIAL HYPERTENSION
     Dosage: 7.5 MG, TID (TOTAL DAILY DOSE)
     Route: 048
     Dates: start: 20170828
  5. REMODULIN [Suspect]
     Active Substance: TREPROSTINIL
     Dosage: 0.002 ?G/KG, CONTINUING
     Route: 041
     Dates: start: 20161222
  6. ADEMPAS [Suspect]
     Active Substance: RIOCIGUAT
     Dosage: 0.5 MG, TID
     Route: 048
     Dates: start: 20170306
  7. POTASSIUM CHLORIDE. [Concomitant]
     Active Substance: POTASSIUM CHLORIDE
     Indication: ELECTROLYTE SUBSTITUTION THERAPY
     Dosage: 20 MEQ, UNK (TOTAL DAILY DOSE)
     Route: 065
     Dates: start: 20170109
  8. WARFARIN [Concomitant]
     Active Substance: WARFARIN
     Dosage: 5 MG, MON,TUES, THURS, FRI
     Route: 065
     Dates: start: 20171121, end: 20171121
  9. TYLENOL [Concomitant]
     Active Substance: ACETAMINOPHEN
     Indication: PAIN
     Dosage: 1000 MG (PRN,Q6 HR) (TOTAL DAILY DOSE)
     Route: 065
     Dates: start: 20170109
  10. VITAMIN D [Concomitant]
     Active Substance: VITAMIN D NOS
     Indication: SUPPLEMENTATION THERAPY
     Dosage: 1000 UNIT, TOTAL DAILY DOSE
     Route: 065
     Dates: start: 20150723
  11. ZOFRAN [Concomitant]
     Active Substance: ONDANSETRON HYDROCHLORIDE
     Indication: NAUSEA
     Dosage: 4 MG, PRN, Q8H (TOTAL DAILY DOSE)
     Route: 065
     Dates: start: 20170322
  12. LASIX [Concomitant]
     Active Substance: FUROSEMIDE
     Indication: OEDEMA PERIPHERAL
     Dosage: 40 MG, TOTAL DAILY DOSE
     Route: 065
     Dates: start: 20161227
  13. REMODULIN [Suspect]
     Active Substance: TREPROSTINIL
     Dosage: 0.0642 ?G/KG, CONTINUING
     Route: 041
  14. WARFARIN [Concomitant]
     Active Substance: WARFARIN
     Indication: PULMONARY EMBOLISM
     Dosage: 2.5 MG, SUN, WED, SAT (TOTAL DAILY DOSE)
     Route: 065
     Dates: start: 20171121, end: 20171121
  15. PERCOCET [Concomitant]
     Active Substance: ACETAMINOPHEN\OXYCODONE HYDROCHLORIDE
     Indication: PAIN
     Dosage: 325 MG, PRN, Q6 H (TOTAL DAILY DOSE)
     Route: 065
     Dates: start: 20171004, end: 20180306
  16. ALBUTEROL. [Concomitant]
     Active Substance: ALBUTEROL
     Indication: ASTHMA
     Dosage: 2 PUFF, PRN, Q6H (TOTAL DAILY DOSE)
     Route: 065
     Dates: start: 20160625, end: 20171221
  17. NEURONTIN [Concomitant]
     Active Substance: GABAPENTIN
     Indication: POST HERPETIC NEURALGIA
     Dosage: 2700 MG, TOTAL DAILY DOSE
     Route: 065
     Dates: start: 20171104, end: 20180306

REACTIONS (2)
  - Vascular device infection [Recovered/Resolved]
  - Injection site haemorrhage [Unknown]

NARRATIVE: CASE EVENT DATE: 20171221
